FAERS Safety Report 13227499 (Version 1)
Quarter: 2017Q1

REPORT INFORMATION
  Report Type: Report from Study
  Country: US (occurrence: US)
  Receive Date: 20170213
  Receipt Date: 20170213
  Transmission Date: 20170428
  Serious: Yes (Death, Other)
  Sender: FDA-Public Use
  Company Number: US-009507513-1701USA002527

PATIENT
  Age: 82 Year
  Sex: Female
  Weight: 47.6 kg

DRUGS (1)
  1. KEYTRUDA [Suspect]
     Active Substance: PEMBROLIZUMAB
     Indication: LIP AND/OR ORAL CAVITY CANCER
     Dosage: 100 MG, UNKNOWN FREQUENCY
     Route: 041
     Dates: start: 2016, end: 2016

REACTIONS (2)
  - Malignant neoplasm progression [Fatal]
  - Product use issue [Unknown]

NARRATIVE: CASE EVENT DATE: 2016
